FAERS Safety Report 6444575-X (Version None)
Quarter: 2009Q4

REPORT INFORMATION
  Report Type: 
  Country: None (occurrence: None)
  Receive Date: 20091118
  Receipt Date: 20090918
  Transmission Date: 20100525
  Serious: No
  Sender: FDA-Public Use
  Company Number: A0808073A

PATIENT
  Age: 68 Year
  Sex: Male

DRUGS (4)
  1. COREG CR [Suspect]
     Dosage: 80MG PER DAY
     Route: 048
     Dates: start: 20090901
  2. LIPITOR [Concomitant]
  3. AVAPRO [Concomitant]
  4. COUMADIN [Concomitant]

REACTIONS (3)
  - ACCIDENTAL OVERDOSE [None]
  - FATIGUE [None]
  - SLUGGISHNESS [None]
